FAERS Safety Report 17026220 (Version 1)
Quarter: 2019Q4

REPORT INFORMATION
  Report Type: Spontaneous
  Country: IN (occurrence: IN)
  Receive Date: 20191113
  Receipt Date: 20191113
  Transmission Date: 20200122
  Serious: Yes (Death)
  Sender: FDA-Public Use
  Company Number: IN-PFIZER INC-2019487595

PATIENT
  Age: 52 Year
  Sex: Female

DRUGS (1)
  1. PALBACE [Suspect]
     Active Substance: PALBOCICLIB
     Indication: BREAST CANCER METASTATIC
     Dosage: 125 MG ONCE A DAY
     Route: 048
     Dates: start: 20190911, end: 2019

REACTIONS (3)
  - Death [Fatal]
  - Neoplasm progression [Unknown]
  - Jaundice [Unknown]

NARRATIVE: CASE EVENT DATE: 2019
